FAERS Safety Report 6423716-4 (Version None)
Quarter: 2009Q4

REPORT INFORMATION
  Report Type: 
  Country: None (occurrence: None)
  Receive Date: 20091028
  Receipt Date: 20091019
  Transmission Date: 20100525
  Serious: Yes (Life-Threatening, Hospitalization)
  Sender: FDA-Public Use
  Company Number: DSA_41877_2009

PATIENT
  Sex: Male

DRUGS (1)
  1. BUPROPION HYDROCHLORIDE [Suspect]
     Indication: DEPRESSION
     Dosage: (450 MG ORAL)
     Route: 048
     Dates: start: 20090914, end: 20091002

REACTIONS (2)
  - ACCIDENTAL OVERDOSE [None]
  - ATRIAL FIBRILLATION [None]
